FAERS Safety Report 20524680 (Version 1)
Quarter: 2022Q1

REPORT INFORMATION
  Report Type: Spontaneous
  Country: CH (occurrence: CH)
  Receive Date: 20220228
  Receipt Date: 20220228
  Transmission Date: 20220424
  Serious: Yes (Other)
  Sender: FDA-Public Use
  Company Number: CH-Accord-255341

PATIENT
  Age: 84 Year
  Sex: Female

DRUGS (8)
  1. CINACALCET HYDROCHLORIDE [Suspect]
     Active Substance: CINACALCET HYDROCHLORIDE
     Indication: Hyperparathyroidism primary
     Dosage: WAS REDUCED TO 30 MG TWICE DAILY
     Dates: start: 201904
  2. ZOLEDRONIC ACID [Suspect]
     Active Substance: ZOLEDRONIC ACID
     Indication: Hypercalcaemia
     Route: 042
     Dates: start: 20190129
  3. SALINE [Concomitant]
     Active Substance: SODIUM CHLORIDE
     Route: 042
  4. CALCITONIN [Concomitant]
     Active Substance: CALCITONIN
     Indication: Hypercalcaemia
     Dates: start: 20190129
  5. ONDANSETRON [Concomitant]
     Active Substance: ONDANSETRON
  6. METOCLOPRAMIDE [Concomitant]
     Active Substance: METOCLOPRAMIDE
  7. PREDNISONE [Concomitant]
     Active Substance: PREDNISONE
  8. DENOSUMAB [Concomitant]
     Active Substance: DENOSUMAB
     Indication: Hypercalcaemia
     Dosage: FOLLOWED BY EIGHT DOSES OF 60 OR 120 MG
     Dates: start: 20190603

REACTIONS (1)
  - Acute kidney injury [Unknown]
